FAERS Safety Report 4484914-2 (Version None)
Quarter: 2004Q3

REPORT INFORMATION
  Report Type: 
  Country: None (occurrence: None)
  Receive Date: 20040921
  Receipt Date: 20030806
  Transmission Date: 20050211
  Serious: Yes (Other)
  Sender: FDA-Public Use
  Company Number: 163-20785-03080289

PATIENT
  Age: 82 Year
  Sex: Male
  Weight: 78.9 kg

DRUGS (6)
  1. THALOMID [Suspect]
     Indication: MULTIPLE MYELOMA
     Dosage: 200 MG, QD X 28D, ORAL
     Route: 048
     Dates: start: 20021008, end: 20030424
  2. DEXAMETHASONE [Suspect]
     Indication: MULTIPLE MYELOMA
     Dosage: 40 MG, DAYS 1-4, 9-12, 17-20, ORAL
     Route: 048
     Dates: start: 20021008, end: 20030120
  3. PAMIDRONATE DISODIUM [Suspect]
     Indication: MULTIPLE MYELOMA
     Dosage: 90 MG, Q28D, INTRAVENOUS
     Route: 042
     Dates: start: 20021008, end: 20030128
  4. ZOLEDRONIC ACID (ZOLEDRONIC ACID) (INJECTION) [Suspect]
     Indication: MULTIPLE MYELOMA
     Dosage: 4 MG, DAY 1 OF WK4, 8, 12, 16, INTRAVENOUS
     Route: 042
     Dates: start: 20030225, end: 20030424
  5. LASIX [Concomitant]
  6. ALEVE [Concomitant]

REACTIONS (3)
  - BLOOD CREATININE INCREASED [None]
  - OEDEMA [None]
  - RENAL CYST [None]
